FAERS Safety Report 18420145 (Version 1)
Quarter: 2020Q4

REPORT INFORMATION
  Report Type: Spontaneous
  Country: CA (occurrence: CA)
  Receive Date: 20201023
  Receipt Date: 20201023
  Transmission Date: 20210114
  Serious: Yes (Life-Threatening, Hospitalization)
  Sender: FDA-Public Use
  Company Number: CA-PFIZER INC-2020410871

PATIENT
  Age: 57 Year
  Sex: Female

DRUGS (7)
  1. ROCURONIUM [Concomitant]
     Active Substance: ROCURONIUM BROMIDE
  2. CEFAZOLIN [Suspect]
     Active Substance: CEFAZOLIN
     Dosage: 2000 MG
     Route: 042
  3. ROCURONIUM BROMIDE. [Suspect]
     Active Substance: ROCURONIUM BROMIDE
     Dosage: 50 MG
     Route: 042
  4. FENTANYL. [Concomitant]
     Active Substance: FENTANYL
  5. LIDOCAINE. [Concomitant]
     Active Substance: LIDOCAINE
  6. PROPOFOL. [Concomitant]
     Active Substance: PROPOFOL
  7. FRAGMIN [Concomitant]
     Active Substance: DALTEPARIN SODIUM

REACTIONS (5)
  - Bronchospasm [Unknown]
  - Circulatory collapse [Unknown]
  - Hypoventilation [Unknown]
  - Anaphylactic reaction [Unknown]
  - Pulseless electrical activity [Unknown]
